FAERS Safety Report 7913528-4 (Version None)
Quarter: 2011Q4

REPORT INFORMATION
  Report Type: 
  Country: None (occurrence: None)
  Receive Date: 20111110
  Receipt Date: 20111103
  Transmission Date: 20120403
  Serious: Yes (Death)
  Sender: FDA-Public Use
  Company Number: DSA_48103_2011

PATIENT
  Age: 79 Year
  Sex: Female

DRUGS (2)
  1. XENAZINE [Suspect]
     Indication: DYSKINESIA
     Dosage: 12.5 MG, TID, ORAL
     Route: 048
     Dates: start: 20100716, end: 20111101
  2. XENAZINE [Suspect]
     Indication: DYSKINESIA
     Dosage: 12.5 MG, TID, ORAL
     Route: 048
     Dates: start: 20100716, end: 20111101

REACTIONS (1)
  - DEATH [None]
